FAERS Safety Report 20930324 (Version 2)
Quarter: 2022Q3

REPORT INFORMATION
  Report Type: Report from Study
  Country: CA (occurrence: CA)
  Receive Date: 20220608
  Receipt Date: 20220711
  Transmission Date: 20221027
  Serious: Yes (Hospitalization, Other)
  Sender: FDA-Public Use
  Company Number: CA-BRISTOL-MYERS SQUIBB COMPANY-2022-033685

PATIENT
  Age: 76 Year
  Sex: Female
  Weight: 66.6 kg

DRUGS (18)
  1. AZACITIDINE [Suspect]
     Active Substance: AZACITIDINE
     Indication: Myelodysplastic syndrome
     Dosage: DAYS WITHIN THE FIRST 9 CALENDAR DAYS OF EACH 28-DAY CYCLE (75 MG/M2,1 IN  1 D)
     Route: 058
     Dates: start: 20211101
  2. VENETOCLAX [Suspect]
     Active Substance: VENETOCLAX
     Indication: Myelodysplastic syndrome
     Dosage: DAYS 1 TO 14 OF EACH 28-DAY CYCLE (400 MG,1 IN 1 D)
     Route: 048
     Dates: start: 20211101
  3. AMLODIPINE [Concomitant]
     Active Substance: AMLODIPINE BESYLATE
     Indication: Hypertension
     Route: 048
  4. VITAMIN D [Concomitant]
     Active Substance: VITAMIN D NOS
     Indication: Osteoporosis prophylaxis
     Dosage: 1 IN 1 D
     Route: 048
  5. IMOVANE [Concomitant]
     Active Substance: ZOPICLONE
     Indication: Insomnia
     Dosage: 1 AS REQUIRED
     Route: 048
     Dates: start: 20211029
  6. FILGRASTIM [Concomitant]
     Active Substance: FILGRASTIM
     Indication: Neutropenia
     Dosage: 1 IN 1 D
     Route: 058
     Dates: start: 20220419, end: 20220426
  7. FILGRASTIM [Concomitant]
     Active Substance: FILGRASTIM
     Dosage: 1 IN 1 D
     Route: 058
     Dates: start: 20220128, end: 20220201
  8. FILGRASTIM [Concomitant]
     Active Substance: FILGRASTIM
     Dosage: 1 IN 1 D
     Route: 058
     Dates: start: 20220202, end: 20220210
  9. FILGRASTIM [Concomitant]
     Active Substance: FILGRASTIM
     Dosage: 1 IN 1 D
     Route: 058
     Dates: start: 20220401, end: 20220407
  10. FILGRASTIM [Concomitant]
     Active Substance: FILGRASTIM
     Dosage: 1 IN 1 D
     Route: 058
     Dates: start: 20220409, end: 20220415
  11. ATORVASTATIN [Concomitant]
     Active Substance: ATORVASTATIN
     Indication: Dyslipidaemia
     Route: 048
  12. VITAMIN D [Concomitant]
     Active Substance: VITAMIN D NOS
     Indication: Osteoporosis
     Dosage: 1 IN 1 D
     Route: 048
     Dates: start: 20191008
  13. TYLENOL [Concomitant]
     Active Substance: ACETAMINOPHEN
     Indication: Periorbital cellulitis
     Dosage: 1 AS REQUIRED
     Route: 048
     Dates: start: 20220127
  14. TYLENOL [Concomitant]
     Active Substance: ACETAMINOPHEN
     Indication: Febrile neutropenia
     Dosage: 1000 MG,1 AS REQUIRED
     Route: 048
     Dates: start: 20211122, end: 20211129
  15. TYLENOL [Concomitant]
     Active Substance: ACETAMINOPHEN
     Indication: Headache
  16. TYLENOL [Concomitant]
     Active Substance: ACETAMINOPHEN
     Indication: Abdominal pain
  17. TYLENOL [Concomitant]
     Active Substance: ACETAMINOPHEN
     Indication: Back pain
  18. LAX A DAY [Concomitant]
     Indication: Constipation
     Dosage: 1 IN 1 D
     Route: 048
     Dates: start: 20220317

REACTIONS (1)
  - Periorbital cellulitis [Recovered/Resolved]

NARRATIVE: CASE EVENT DATE: 20220422
